FAERS Safety Report 22154298 (Version 4)
Quarter: 2023Q2

REPORT INFORMATION
  Report Type: Report from Study
  Country: US (occurrence: US)
  Receive Date: 20230330
  Receipt Date: 20230427
  Transmission Date: 20230722
  Serious: Yes (Hospitalization, Other)
  Sender: FDA-Public Use
  Company Number: US-ABBVIE-4709217

PATIENT
  Age: 35 Year
  Sex: Female

DRUGS (21)
  1. SKYRIZI [Suspect]
     Active Substance: RISANKIZUMAB-RZAA
     Indication: Psoriasis
     Dosage: DISCONTINUED
     Route: 058
     Dates: start: 20180328
  2. SKYRIZI [Suspect]
     Active Substance: RISANKIZUMAB-RZAA
     Dosage: START DATE: UNKNOWN
     Route: 058
     Dates: end: 20221201
  3. SKYRIZI [Suspect]
     Active Substance: RISANKIZUMAB-RZAA
     Dosage: DISCONTINUED
     Route: 058
     Dates: start: 20190421
  4. SKYRIZI [Suspect]
     Active Substance: RISANKIZUMAB-RZAA
     Dosage: DISCONTINUED
     Route: 058
     Dates: start: 20211213
  5. SKYRIZI [Suspect]
     Active Substance: RISANKIZUMAB-RZAA
     Dosage: START DATE: UNKNOWN
     Route: 058
     Dates: end: 20221228
  6. SKYRIZI [Suspect]
     Active Substance: RISANKIZUMAB-RZAA
     Dosage: START DATE 30 APR 2023 AS PER LIVE FOLLOW UP
     Route: 058
  7. CLONIDINE [Concomitant]
     Active Substance: CLONIDINE
     Indication: Hypertension
     Dates: start: 20220327
  8. HYDROXYZINE [Concomitant]
     Active Substance: HYDROXYZINE HYDROCHLORIDE
     Indication: Anxiety
     Dates: start: 20230127
  9. HYDROXYZINE [Concomitant]
     Active Substance: HYDROXYZINE HYDROCHLORIDE
     Indication: Anxiety
     Dates: start: 20221221
  10. ZOLOFT [Concomitant]
     Active Substance: SERTRALINE HYDROCHLORIDE
     Indication: Product used for unknown indication
     Dates: start: 20210327
  11. OMEPRAZOLE [Concomitant]
     Active Substance: OMEPRAZOLE
     Indication: Nausea
     Dates: start: 20230120
  12. FOLIC ACID [Concomitant]
     Active Substance: FOLIC ACID
     Indication: Product used for unknown indication
     Dates: start: 20230402
  13. LEVETIRACETAM [Concomitant]
     Active Substance: LEVETIRACETAM
     Indication: Seizure
     Dosage: LEVETIRACETAM 500MG
     Dates: start: 20221221
  14. AMLODIPINE [Concomitant]
     Active Substance: AMLODIPINE BESYLATE
     Indication: Hypertension
     Dosage: AMLODEFINE 2.5MG NORVASC
     Dates: start: 20230402
  15. OXCARBAZEPINE [Concomitant]
     Active Substance: OXCARBAZEPINE
     Indication: Seizure
     Dosage: OXCARBAZEPINE 150 MG
  16. CALCIUM CARBONATE [Concomitant]
     Active Substance: CALCIUM CARBONATE
     Indication: Hypertension
     Dates: start: 20230402
  17. SERTRALINE [Concomitant]
     Active Substance: SERTRALINE HYDROCHLORIDE
     Indication: Anxiety
     Dates: start: 20230330
  18. VITAMIN D [Concomitant]
     Active Substance: VITAMIN D NOS
     Indication: Vitamin D decreased
     Dosage: 500MG
     Dates: start: 20230407
  19. HYDRALAZINE [Concomitant]
     Active Substance: HYDRALAZINE HYDROCHLORIDE
     Indication: Hypertension
     Dosage: HYDRALAZINE 100 MG
     Dates: start: 20221221
  20. LISINOPRIL [Concomitant]
     Active Substance: LISINOPRIL
     Indication: Hypertension
     Dosage: LISINOPRIL 25 MG
     Dates: start: 20220420
  21. GIMOTI [Concomitant]
     Active Substance: METOCLOPRAMIDE HYDROCHLORIDE
     Indication: Vomiting
     Dosage: SPRAY GIMOTI
     Dates: start: 20230120

REACTIONS (8)
  - Seizure [Recovered/Resolved]
  - Skin disorder [Unknown]
  - Contusion [Unknown]
  - Seizure [Recovered/Resolved]
  - Seizure [Unknown]
  - Seizure [Recovered/Resolved]
  - Cognitive disorder [Unknown]
  - Hypertension [Unknown]

NARRATIVE: CASE EVENT DATE: 20190421
